FAERS Safety Report 24697645 (Version 1)
Quarter: 2024Q4

REPORT INFORMATION
  Report Type: Spontaneous
  Country: US (occurrence: US)
  Receive Date: 20241204
  Receipt Date: 20241204
  Transmission Date: 20250114
  Serious: No
  Sender: VERTEX
  Company Number: CA-MMM-S5CIY8L6

PATIENT

DRUGS (1)
  1. ELEXACAFTOR\IVACAFTOR\TEZACAFTOR [Suspect]
     Active Substance: ELEXACAFTOR\IVACAFTOR\TEZACAFTOR
     Indication: Cystic fibrosis
     Dosage: UNKNOWN DOSAGE REGIMEN
     Route: 048

REACTIONS (6)
  - Brain fog [Not Recovered/Not Resolved]
  - COVID-19 [Unknown]
  - Memory impairment [Not Recovered/Not Resolved]
  - Weight increased [Recovered/Resolved]
  - Attention deficit hyperactivity disorder [Unknown]
  - Pruritus [Recovered/Resolved]
